FAERS Safety Report 11907244 (Version 4)
Quarter: 2016Q2

REPORT INFORMATION
  Report Type: Spontaneous
  Country: BR (occurrence: BR)
  Receive Date: 20160111
  Receipt Date: 20160527
  Transmission Date: 20160815
  Serious: Yes (Hospitalization, Other)
  Sender: FDA-Public Use
  Company Number: BR-PFIZER INC-2015269078

PATIENT
  Age: 65 Year
  Sex: Female
  Weight: 79 kg

DRUGS (7)
  1. SIMVASTATIN. [Concomitant]
     Active Substance: SIMVASTATIN
  2. SUTENT [Suspect]
     Active Substance: SUNITINIB MALATE
     Indication: GASTROINTESTINAL STROMAL CANCER
     Dosage: 37.5 MG, DAILY (CONTINUOUS USE)
     Route: 048
     Dates: start: 201509
  3. SUTENT [Suspect]
     Active Substance: SUNITINIB MALATE
     Dosage: 37.5 MG, CONTINUOUS
     Route: 048
     Dates: start: 20151208, end: 20160322
  4. LASIX [Concomitant]
     Active Substance: FUROSEMIDE
  5. GLIFAGE [Concomitant]
     Active Substance: METFORMIN HYDROCHLORIDE
  6. ELIQUIS [Concomitant]
     Active Substance: APIXABAN
  7. SUTENT [Suspect]
     Active Substance: SUNITINIB MALATE
     Dosage: UNK

REACTIONS (29)
  - Tongue injury [Not Recovered/Not Resolved]
  - Feeling cold [Not Recovered/Not Resolved]
  - Pain in extremity [Not Recovered/Not Resolved]
  - Dyspnoea [Recovered/Resolved]
  - Dysentery [Unknown]
  - Tongue discolouration [Not Recovered/Not Resolved]
  - Dysgeusia [Not Recovered/Not Resolved]
  - Palpitations [Recovered/Resolved]
  - General physical health deterioration [Unknown]
  - Mouth haemorrhage [Unknown]
  - Insomnia [Recovered/Resolved]
  - Disease progression [Not Recovered/Not Resolved]
  - Gait disturbance [Not Recovered/Not Resolved]
  - Blister [Unknown]
  - Erythema [Unknown]
  - Ischaemia [Unknown]
  - Oral discomfort [Not Recovered/Not Resolved]
  - Gastrointestinal stromal tumour [Not Recovered/Not Resolved]
  - Vomiting [Recovered/Resolved]
  - Weight decreased [Not Recovered/Not Resolved]
  - Oral pain [Unknown]
  - Heart rate irregular [Not Recovered/Not Resolved]
  - Abdominal pain [Unknown]
  - Blood glucose abnormal [Not Recovered/Not Resolved]
  - Fatigue [Recovered/Resolved]
  - Oral disorder [Not Recovered/Not Resolved]
  - Aphthous ulcer [Recovering/Resolving]
  - Stomatitis [Unknown]
  - Blood triglycerides abnormal [Not Recovered/Not Resolved]

NARRATIVE: CASE EVENT DATE: 2015
